FAERS Safety Report 12170393 (Version 2)
Quarter: 2016Q2

REPORT INFORMATION
  Report Type: Spontaneous
  Country: IT (occurrence: IT)
  Receive Date: 20160311
  Receipt Date: 20160405
  Transmission Date: 20160815
  Serious: Yes (Other)
  Sender: FDA-Public Use
  Company Number: IT-ROCHE-1724290

PATIENT
  Age: 53 Year
  Sex: Female
  Weight: 54 kg

DRUGS (6)
  1. PACLITAXEL. [Suspect]
     Active Substance: PACLITAXEL
     Indication: OVARIAN CANCER
     Dosage: ^6 MG/ML^ 1 GLASS VIAL CONTAINING 30 MG/5 ML
     Route: 042
     Dates: start: 20160118, end: 20160307
  2. RANITIDINE. [Concomitant]
     Active Substance: RANITIDINE
     Indication: PREMEDICATION
     Route: 031
     Dates: start: 20160307, end: 20160307
  3. TRIMETON (ITALY) [Concomitant]
     Indication: PREMEDICATION
     Dosage: ^10 MG/1^ ML 5 VIALS
     Route: 042
     Dates: start: 20160307, end: 20160307
  4. CARBOPLATIN. [Suspect]
     Active Substance: CARBOPLATIN
     Indication: OVARIAN CANCER
     Dosage: ^50 MG/5 ML^ 1 VIAL CONTAINING 5 ML
     Route: 042
     Dates: start: 20160118, end: 20160307
  5. AVASTIN [Suspect]
     Active Substance: BEVACIZUMAB
     Indication: OVARIAN CANCER
     Dosage: 1 VIAL CONTAINING 400 MG
     Route: 042
     Dates: start: 20160118, end: 20160307
  6. DEXAMETHASONE PHOSPHATE [Concomitant]
     Active Substance: DEXAMETHASONE PHOSPHATE
     Indication: PREMEDICATION
     Dosage: ^8 MG/2 ML SOLUTION FOR INJECTION^ 1 VIAL
     Route: 065
     Dates: start: 20160307, end: 20160307

REACTIONS (6)
  - Abdominal pain upper [Recovering/Resolving]
  - Blood pressure increased [Recovering/Resolving]
  - Nausea [Recovering/Resolving]
  - Erythema [Recovering/Resolving]
  - Vomiting [Recovering/Resolving]
  - Malaise [Recovering/Resolving]

NARRATIVE: CASE EVENT DATE: 20160307
